FAERS Safety Report 5165130-8 (Version None)
Quarter: 2006Q4

REPORT INFORMATION
  Report Type: 
  Country: None (occurrence: None)
  Receive Date: 20061127
  Receipt Date: 20061115
  Transmission Date: 20070319
  Serious: Yes (Hospitalization, Other)
  Sender: FDA-Public Use
  Company Number: HQWYE614315NOV06

PATIENT
  Age: 79 Year
  Sex: Female

DRUGS (13)
  1. PANTOPRAZOLE SODIUM [Suspect]
     Dosage: DOSE AND FREQUENCY UNSPECIFIED ORAL
     Route: 048
  2. LASIX [Suspect]
     Dosage: 80 MG 1X PER 1 DAY ORAL
     Route: 048
  3. MICARDIS HCT [Suspect]
     Dosage: 1 DOSAGE FORM 1X PER 1 DAY ORAL
     Route: 048
  4. GLUCOPHAGE [Concomitant]
  5. LEVOTHYROXINE SODIUM [Concomitant]
  6. LEXOMIL (BROMAZEPAM) [Concomitant]
  7. BETASERC (BETAHISTINE HYDROCHLORIDE) [Concomitant]
  8. CITALOPRAM HYDROBROMIDE [Concomitant]
  9. TRAMADOL HCL [Concomitant]
  10. PLAVIX [Concomitant]
  11. ZOLPIDEM TARTRATE [Concomitant]
  12. RISPERDAL [Concomitant]
  13. LANTUS [Concomitant]

REACTIONS (4)
  - CONDITION AGGRAVATED [None]
  - DRUG INTERACTION [None]
  - HYPOGLYCAEMIA [None]
  - RENAL FAILURE [None]
